FAERS Safety Report 6736215-7 (Version None)
Quarter: 2010Q2

REPORT INFORMATION
  Report Type: 
  Country: None (occurrence: None)
  Receive Date: 20100521
  Receipt Date: 20100511
  Transmission Date: 20101027
  Serious: Yes (Hospitalization, Disabling, Other)
  Sender: FDA-Public Use
  Company Number: AT-ABBOTT-10P-009-0627563-00

PATIENT
  Sex: Male
  Weight: 79 kg

DRUGS (2)
  1. HUMIRA [Suspect]
     Indication: RHEUMATOID ARTHRITIS
     Route: 058
     Dates: start: 20071001, end: 20100207
  2. EBETREXAT [Suspect]
     Indication: RHEUMATOID ARTHRITIS
     Dates: start: 20081001

REACTIONS (3)
  - ACUTE MYOCARDIAL INFARCTION [None]
  - SUBDURAL HAEMATOMA [None]
  - VENTRICULAR FIBRILLATION [None]
